FAERS Safety Report 20299246 (Version 1)
Quarter: 2022Q1

REPORT INFORMATION
  Report Type: Spontaneous
  Country: US (occurrence: None)
  Receive Date: 20220104
  Receipt Date: 20220104
  Transmission Date: 20220423
  Serious: No
  Sender: FDA-Public Use
  Company Number: None

PATIENT
  Age: 54 Year
  Sex: Female
  Weight: 51.75 kg

DRUGS (1)
  1. BOTOX [Suspect]
     Active Substance: ONABOTULINUMTOXINA
     Indication: Skin wrinkling
     Route: 058
     Dates: start: 20211116, end: 20211116

REACTIONS (6)
  - Diplopia [None]
  - Dizziness [None]
  - Photophobia [None]
  - Pain [None]
  - Eye pain [None]
  - Lacrimal structural disorder [None]

NARRATIVE: CASE EVENT DATE: 20211116
